FAERS Safety Report 9679976 (Version 1)
Quarter: 2013Q4

REPORT INFORMATION
  Report Type: Report from Study
  Country: US (occurrence: US)
  Receive Date: 20131110
  Receipt Date: 20131110
  Transmission Date: 20140711
  Serious: Yes (Other)
  Sender: FDA-Public Use
  Company Number: PHEH2013US023132

PATIENT
  Sex: Female

DRUGS (4)
  1. GILENYA [Suspect]
     Indication: MULTIPLE SCLEROSIS
     Dosage: 0.5 MG, QD
     Route: 048
     Dates: start: 20120124
  2. CENTRUM SILVER [Concomitant]
  3. ANASTROZOLE [Concomitant]
  4. ADVACAL//CALCIUM [Concomitant]

REACTIONS (1)
  - Breast cancer [Unknown]
